FAERS Safety Report 6416311-4 (Version None)
Quarter: 2009Q4

REPORT INFORMATION
  Report Type: 
  Country: None (occurrence: None)
  Receive Date: 20091023
  Receipt Date: 20091007
  Transmission Date: 20100525
  Serious: Yes (Other)
  Sender: FDA-Public Use
  Company Number: TPA2009A03119

PATIENT
  Age: 66 Year
  Sex: Female

DRUGS (1)
  1. KAPIDEX [Suspect]
     Indication: DRUG USE FOR UNKNOWN INDICATION
     Dosage: 60 MG, 1 IN 1 D, PER ORAL
     Route: 048
     Dates: start: 20091001, end: 20091001

REACTIONS (2)
  - PHARYNGEAL OEDEMA [None]
  - SWELLING FACE [None]
